FAERS Safety Report 6984918-1 (Version None)
Quarter: 2010Q3

REPORT INFORMATION
  Report Type: 
  Country: None (occurrence: None)
  Receive Date: 20100913
  Receipt Date: 20100908
  Transmission Date: 20110219
  Serious: Yes (Other)
  Sender: FDA-Public Use
  Company Number: A-US2010-39663

PATIENT
  Age: 79 Year
  Sex: Female

DRUGS (3)
  1. TRACLEER [Suspect]
     Indication: PULMONARY ARTERIAL HYPERTENSION
     Dosage: ORAL
     Route: 048
     Dates: start: 20060705, end: 20100904
  2. VENTAVIS [Concomitant]
  3. REVATIO [Concomitant]

REACTIONS (1)
  - MYOCARDIAL INFARCTION [None]
